FAERS Safety Report 25614176 (Version 1)
Quarter: 2025Q3

REPORT INFORMATION
  Report Type: Spontaneous
  Country: US (occurrence: US)
  Receive Date: 20250728
  Receipt Date: 20250728
  Transmission Date: 20251021
  Serious: Yes (Hospitalization, Other)
  Sender: SANDOZ
  Company Number: US-SANDOZ-SDZ2025US053014

PATIENT
  Age: 16 Year
  Sex: Female

DRUGS (1)
  1. ZIPRASIDONE HYDROCHLORIDE [Suspect]
     Active Substance: ZIPRASIDONE HYDROCHLORIDE
     Indication: Bipolar I disorder
     Dosage: 40 MG, BID
     Route: 065

REACTIONS (3)
  - Bipolar I disorder [Unknown]
  - Condition aggravated [Unknown]
  - Drug ineffective [Unknown]
